FAERS Safety Report 8270011-7 (Version None)
Quarter: 2012Q2

REPORT INFORMATION
  Report Type: 
  Country: None (occurrence: None)
  Receive Date: 20120410
  Receipt Date: 20120403
  Transmission Date: 20120825
  Serious: No
  Sender: FDA-Public Use
  Company Number: US-PFIZER INC-2012014434

PATIENT
  Sex: Male

DRUGS (5)
  1. OMEPRAZOLE [Concomitant]
     Dosage: UNK
  2. LYRICA [Suspect]
     Dosage: 50 MG, 3X/DAY
  3. ATENOLOL [Concomitant]
     Dosage: UNK
  4. INSULIN [Concomitant]
     Dosage: UNK
  5. PRAVASTATIN [Concomitant]
     Dosage: UNK

REACTIONS (1)
  - PAIN [None]
